FAERS Safety Report 9525497 (Version 1)
Quarter: 2013Q3

REPORT INFORMATION
  Report Type: Spontaneous
  Country: CL (occurrence: CL)
  Receive Date: 20130916
  Receipt Date: 20130916
  Transmission Date: 20140515
  Serious: Yes (Other)
  Sender: FDA-Public Use
  Company Number: CL-BAYER-2013-109657

PATIENT
  Sex: Female

DRUGS (1)
  1. QLAIRA [Suspect]
     Dosage: UNK
     Route: 048
     Dates: start: 201212

REACTIONS (1)
  - Urinary tract infection [None]
